FAERS Safety Report 15256608 (Version 1)
Quarter: 2018Q3

REPORT INFORMATION
  Report Type: Spontaneous
  Country: US (occurrence: US)
  Receive Date: 20180808
  Receipt Date: 20180808
  Transmission Date: 20181010
  Serious: No
  Sender: FDA-Public Use
  Company Number: US-BAYER-2018-136694

PATIENT
  Age: 10 Month
  Sex: Female

DRUGS (5)
  1. CISPLATIN. [Concomitant]
     Active Substance: CISPLATIN
     Indication: NEUROBLASTOMA
  2. DOXORUBICIN [Concomitant]
     Active Substance: DOXORUBICIN
     Indication: NEUROBLASTOMA
  3. CYCLOPHOSPHAMIDE. [Concomitant]
     Active Substance: CYCLOPHOSPHAMIDE
     Indication: NEUROBLASTOMA
  4. DACARBAZINE. [Suspect]
     Active Substance: DACARBAZINE
     Indication: NEUROBLASTOMA
     Dosage: UNK
  5. VINCRISTIN [Concomitant]
     Active Substance: VINCRISTINE
     Indication: NEUROBLASTOMA

REACTIONS (2)
  - Off label use [None]
  - Product use in unapproved indication [None]
